FAERS Safety Report 6908910-8 (Version None)
Quarter: 2010Q3

REPORT INFORMATION
  Report Type: 
  Country: None (occurrence: None)
  Receive Date: 20100719
  Receipt Date: 20090715
  Transmission Date: 20110219
  Serious: Yes (Other)
  Sender: FDA-Public Use
  Company Number: US-WYE-H10213909

PATIENT
  Age: 72 Year
  Sex: Male
  Weight: 127.12 kg

DRUGS (1)
  1. ADVIL LIQUI-GELS [Suspect]
     Indication: ARTHRITIS
     Dosage: 2 TABLETS 1 TIME, ORAL
     Route: 048

REACTIONS (2)
  - ABNORMAL DREAMS [None]
  - RESTLESSNESS [None]
